FAERS Safety Report 4910587-8 (Version None)
Quarter: 2006Q1

REPORT INFORMATION
  Report Type: 
  Country: None (occurrence: None)
  Receive Date: 20060214
  Receipt Date: 20050125
  Transmission Date: 20060701
  Serious: Yes (Death)
  Sender: FDA-Public Use
  Company Number: ES-BRISTOL-MYERS SQUIBB COMPANY-12836946

PATIENT
  Age: 69 Year
  Sex: Female

DRUGS (5)
  1. CETUXIMAB [Suspect]
     Indication: COLORECTAL CANCER METASTATIC
     Dosage: LOADING DOSE OF 400 MG/M2
     Route: 042
     Dates: start: 20050117, end: 20050117
  2. IRINOTECAN HCL [Suspect]
     Indication: COLORECTAL CANCER METASTATIC
     Dosage: DOSING INFO: 350 MG/M2
     Route: 042
     Dates: start: 20050117, end: 20050117
  3. AMARYL [Concomitant]
  4. CLEXANE [Concomitant]
     Dates: start: 20041210
  5. NOLOTIL [Concomitant]

REACTIONS (2)
  - SUDDEN DEATH [None]
  - VOMITING [None]
